FAERS Safety Report 12391869 (Version 1)
Quarter: 2016Q2

REPORT INFORMATION
  Report Type: Spontaneous
  Country: US (occurrence: US)
  Receive Date: 20160523
  Receipt Date: 20160523
  Transmission Date: 20160815
  Serious: No
  Sender: FDA-Public Use
  Company Number: US-BIOGEN-2016BI00212818

PATIENT
  Age: 37 Year
  Sex: Female

DRUGS (1)
  1. TYSABRI [Suspect]
     Active Substance: NATALIZUMAB
     Indication: MULTIPLE SCLEROSIS
     Route: 065
     Dates: start: 20141013

REACTIONS (4)
  - Drug dose omission [Not Recovered/Not Resolved]
  - Limb discomfort [Not Recovered/Not Resolved]
  - Hypoaesthesia [Not Recovered/Not Resolved]
  - Musculoskeletal disorder [Not Recovered/Not Resolved]

NARRATIVE: CASE EVENT DATE: 20160212
